FAERS Safety Report 7942400-9 (Version None)
Quarter: 2011Q4

REPORT INFORMATION
  Report Type: 
  Country: None (occurrence: None)
  Receive Date: 20111128
  Receipt Date: 20111118
  Transmission Date: 20120403
  Serious: Yes (Hospitalization)
  Sender: FDA-Public Use
  Company Number: US-BAYER-2011-078112

PATIENT
  Age: 19 Year
  Sex: Female
  Weight: 81.633 kg

DRUGS (6)
  1. MOTRIN [Concomitant]
     Dosage: UNK UNK, PRN
  2. ACYCLOVIR [Concomitant]
     Indication: HERPES VIRUS INFECTION
     Dosage: UNK
     Dates: start: 20030101
  3. YASMIN [Suspect]
     Indication: PREMENSTRUAL SYNDROME
  4. IBUPROFEN [Concomitant]
     Indication: HEADACHE
     Dosage: UNK UNK, PRN
  5. YASMIN [Suspect]
     Indication: CONTRACEPTION
     Dosage: UNK
     Dates: start: 20030101, end: 20050201
  6. IBUPROFEN (ADVIL) [Concomitant]
     Dosage: UNK UNK, PRN

REACTIONS (5)
  - CHOLELITHIASIS [None]
  - INJURY [None]
  - GALLBLADDER DISORDER [None]
  - CHOLECYSTITIS ACUTE [None]
  - BILIARY COLIC [None]
